FAERS Safety Report 9225360 (Version 2)
Quarter: 2013Q2

REPORT INFORMATION
  Report Type: Report from Study
  Country: US (occurrence: US)
  Receive Date: 20130411
  Receipt Date: 20130510
  Transmission Date: 20140414
  Serious: Yes (Hospitalization)
  Sender: FDA-Public Use
  Company Number: US-ROCHE-1210590

PATIENT
  Age: 79 Year
  Sex: Male

DRUGS (3)
  1. ALTEPLASE [Suspect]
     Indication: ARTERIAL OCCLUSIVE DISEASE
     Route: 013
  2. HEPARIN [Suspect]
     Indication: ARTERIAL OCCLUSIVE DISEASE
     Route: 013
  3. EPTIFIBATIDE [Suspect]
     Indication: ARTERIAL OCCLUSIVE DISEASE
     Route: 042

REACTIONS (1)
  - Compartment syndrome [Unknown]
